FAERS Safety Report 15639431 (Version 3)
Quarter: 2019Q4

REPORT INFORMATION
  Report Type: Spontaneous
  Country: US (occurrence: US)
  Receive Date: 20181120
  Receipt Date: 20191023
  Transmission Date: 20200122
  Serious: Yes (Other)
  Sender: FDA-Public Use
  Company Number: US-PFIZER INC-2018476632

PATIENT
  Age: 77 Year
  Sex: Female

DRUGS (17)
  1. LETROZOLE. [Suspect]
     Active Substance: LETROZOLE
     Dosage: 2.5 MG, 1X/DAY, (QD/DAILY)
     Route: 048
     Dates: start: 201801
  2. OSTEO BI-FLEX [CHONDROITIN SULFATE;GLUCOSAMINE HYDROCHLORIDE] [Concomitant]
     Dosage: 1 DF, UNK
     Route: 048
  3. ZESTRIL [Concomitant]
     Active Substance: LISINOPRIL
     Dosage: 40 MG, DAILY
     Route: 048
  4. IBRANCE [Suspect]
     Active Substance: PALBOCICLIB
     Indication: BREAST CANCER FEMALE
     Dosage: 125 MG, CYCLIC, (DAILY X 3 WEEKS/ 1 WEEK OFF)
     Route: 048
     Dates: start: 201801
  5. XANAX [Concomitant]
     Active Substance: ALPRAZOLAM
     Dosage: 0.25 MG, 2X/DAY
     Route: 048
  6. CENTRUM SILVER [ASCORBIC ACID;BETACAROTENE;BIOTIN;CALCIUM;CHROMIUM;COL [Concomitant]
     Dosage: 1 DF, UNK
     Route: 048
  7. ASPIRIN [ACETYLSALICYLIC ACID] [Concomitant]
     Active Substance: ASPIRIN
     Dosage: 81 MG, DAILY
     Route: 048
  8. TENORMIN [Concomitant]
     Active Substance: ATENOLOL
     Dosage: 50 MG, DAILY
     Route: 048
  9. NEURONTIN [Concomitant]
     Active Substance: GABAPENTIN
     Dosage: 100 MG, 2X/DAY
     Route: 048
  10. PRAVACHOL [Concomitant]
     Active Substance: PRAVASTATIN SODIUM
     Dosage: 80 MG, 1X/DAY, [EVERY EVENING]
     Route: 048
  11. METAGLIP [Concomitant]
     Active Substance: GLIPIZIDE\METFORMIN HYDROCHLORIDE
     Dosage: 1 DF, DAILY, [GLIPIZIDE 2.5 MG-METFORMIN 500 MG]
     Route: 048
  12. NORCO [Concomitant]
     Active Substance: ACETAMINOPHEN\HYDROCODONE BITARTRATE
     Dosage: 1 DF, AS NEEDED, [HYDROCODONE BITARTRATE 5 MG, PARACETAMOL 325 MG/EVERY 4 (FOUR) HOURS]
     Route: 048
  13. OMEGA 3 FISH OIL [FISH OIL] [Concomitant]
     Dosage: 1000 MG, DAILY, [300-1,000 MG]
     Route: 048
  14. DURAGESIC [Concomitant]
     Active Substance: FENTANYL
     Dosage: UNK, (75 MCG/HR, (PLACE 1 PATCH ON THE SKIN EVERY THIRD DAY)
     Route: 061
  15. XGEVA [Concomitant]
     Active Substance: DENOSUMAB
     Indication: METASTASES TO BONE
     Dosage: 12.5 MG, UNK, [QD EVERY 4 WEEKS]
     Route: 048
     Dates: start: 201801
  16. PROZAC [Concomitant]
     Active Substance: FLUOXETINE HYDROCHLORIDE
     Dosage: 20 MG, 2X/DAY
     Route: 048
  17. PRINIVIL [Concomitant]
     Active Substance: LISINOPRIL
     Dosage: 40 MG, DAILY
     Route: 048

REACTIONS (3)
  - Leukopenia [Unknown]
  - Anaemia [Unknown]
  - Hypoacusis [Unknown]

NARRATIVE: CASE EVENT DATE: 2018
